FAERS Safety Report 5381408-7 (Version None)
Quarter: 2007Q3

REPORT INFORMATION
  Report Type: 
  Country: None (occurrence: None)
  Receive Date: 20070709
  Receipt Date: 20070625
  Transmission Date: 20080115
  Serious: Yes (Other)
  Sender: FDA-Public Use
  Company Number: DE-SHR-DE-2007-017566

PATIENT
  Age: 54 Year
  Sex: Female
  Weight: 65 kg

DRUGS (4)
  1. SOTALOL HYDROCHLORIDE [Suspect]
     Dosage: 2400 MG, 1 DOSE
     Route: 048
  2. INSIDON ^CIBA-GEIGY^ [Suspect]
     Dosage: 500 MG, 1 DOSE
     Route: 048
  3. CAPTOPRIL AND HYDROCHLOROTHIAZIDE [Suspect]
     Dosage: 2 TAB(S), 1 DOSE
     Route: 048
  4. HYDROCHLOROTHIAZIDE [Suspect]
     Dosage: 25 MG, 1 DOSE
     Route: 048

REACTIONS (3)
  - HYPOTENSION [None]
  - INTENTIONAL OVERDOSE [None]
  - SUICIDE ATTEMPT [None]
